FAERS Safety Report 4900037-X (Version None)
Quarter: 2006Q1

REPORT INFORMATION
  Report Type: 
  Country: None (occurrence: None)
  Receive Date: 20060131
  Receipt Date: 20060118
  Transmission Date: 20060701
  Serious: Yes (Other)
  Sender: FDA-Public Use
  Company Number: 2006009630

PATIENT
  Sex: Female

DRUGS (1)
  1. ZMAX [Suspect]
     Indication: ILL-DEFINED DISORDER

REACTIONS (6)
  - EYE SWELLING [None]
  - IMMOBILE [None]
  - INCOHERENT [None]
  - SENSATION OF HEAVINESS [None]
  - SPEECH DISORDER [None]
  - SWOLLEN TONGUE [None]
